FAERS Safety Report 10165662 (Version 2)
Quarter: 2014Q4

REPORT INFORMATION
  Report Type: Spontaneous
  Country: US (occurrence: US)
  Receive Date: 20140510
  Receipt Date: 20141205
  Transmission Date: 20150528
  Serious: No
  Sender: FDA-Public Use
  Company Number: US-BRISTOL-MYERS SQUIBB COMPANY-19884451

PATIENT
  Age: 63 Year
  Sex: Female
  Weight: 74.83 kg

DRUGS (13)
  1. AMARYL [Concomitant]
     Active Substance: GLIMEPIRIDE
  2. LEVEMIR [Concomitant]
     Active Substance: INSULIN DETEMIR
     Dosage: 1DF: 40 UNITS NOS:LEVEMIR FLEXPEN 100 UNIT/ML (3 ML) SOLUTION
     Route: 058
  3. METFORMIN HCL TABS 500MG [Concomitant]
     Active Substance: METFORMIN HYDROCHLORIDE
     Route: 048
  4. NADOLOL. [Concomitant]
     Active Substance: NADOLOL
  5. TRILIPIX [Concomitant]
     Active Substance: FENOFIBRIC ACID
  6. LISINOPRIL. [Concomitant]
     Active Substance: LISINOPRIL
     Route: 048
  7. AMITRIPTYLINE [Concomitant]
     Active Substance: AMITRIPTYLINE
  8. FENOFIBRATE. [Concomitant]
     Active Substance: FENOFIBRATE
     Dosage: TABLET
     Route: 048
  9. GLIMEPIRIDE. [Concomitant]
     Active Substance: GLIMEPIRIDE
     Dosage: TABLET
     Route: 048
  10. LIPITOR [Concomitant]
     Active Substance: ATORVASTATIN CALCIUM
     Route: 048
  11. BYDUREON [Suspect]
     Active Substance: EXENATIDE
     Indication: TYPE 2 DIABETES MELLITUS
     Dosage: EXP DATE: JUN2016,EXTENDED RELEASE SUSPENSION
     Route: 058
  12. FLONASE [Concomitant]
     Active Substance: FLUTICASONE PROPIONATE
  13. CORGARD TABS 40 MG [Concomitant]
     Route: 048

REACTIONS (5)
  - Underdose [Unknown]
  - Injection site swelling [Unknown]
  - Injection site erythema [Unknown]
  - Injection site pain [Unknown]
  - Injury associated with device [Unknown]
